FAERS Safety Report 6192282-3 (Version None)
Quarter: 2009Q2

REPORT INFORMATION
  Report Type: 
  Country: None (occurrence: None)
  Receive Date: 20090515
  Receipt Date: 20090512
  Transmission Date: 20091009
  Serious: Yes (Death, Hospitalization)
  Sender: FDA-Public Use
  Company Number: GR-ABBOTT-09P-066-0559153-00

PATIENT
  Sex: Male
  Weight: 63 kg

DRUGS (10)
  1. ZEMPLAR [Suspect]
     Indication: HYPERPARATHYROIDISM SECONDARY
     Route: 042
     Dates: start: 20070423, end: 20090420
  2. DILATREND [Concomitant]
     Indication: DRUG USE FOR UNKNOWN INDICATION
  3. TRIATEC [Concomitant]
     Indication: DRUG USE FOR UNKNOWN INDICATION
  4. SUPERAMIN [Concomitant]
     Indication: DRUG USE FOR UNKNOWN INDICATION
  5. ARANESP [Concomitant]
     Indication: DRUG USE FOR UNKNOWN INDICATION
  6. CALCIORAL [Concomitant]
     Indication: DRUG USE FOR UNKNOWN INDICATION
  7. FERROVIN [Concomitant]
     Indication: DRUG USE FOR UNKNOWN INDICATION
  8. NEUROBION [Concomitant]
     Indication: DRUG USE FOR UNKNOWN INDICATION
  9. RENAGEL [Concomitant]
     Indication: DRUG USE FOR UNKNOWN INDICATION
  10. INSPRA [Concomitant]
     Indication: CORONARY ARTERY DISEASE

REACTIONS (6)
  - CARDIAC ARREST [None]
  - CHOLANGITIS [None]
  - CORONARY ARTERY DISEASE [None]
  - JAUNDICE [None]
  - PULMONARY OEDEMA [None]
  - PYREXIA [None]
